FAERS Safety Report 24200925 (Version 6)
Quarter: 2024Q4

REPORT INFORMATION
  Report Type: Spontaneous
  Country: PT (occurrence: PT)
  Receive Date: 20240812
  Receipt Date: 20241022
  Transmission Date: 20250114
  Serious: Yes (Life-Threatening)
  Sender: MYLAN
  Company Number: PT-MYLANLABS-2024M1074170

PATIENT
  Age: 75 Year
  Sex: Female

DRUGS (4)
  1. EPIPEN [Suspect]
     Active Substance: EPINEPHRINE
     Indication: Anaphylactic shock
     Dosage: UNK
     Route: 065
     Dates: start: 20240731
  2. TRAMADOL [Concomitant]
     Active Substance: TRAMADOL
     Indication: Pain
     Dosage: 50 MILLIGRAM, PRN (1 CAPSULE IN SOS, STARTED AROUND 2-3 YEARS AGO)
     Route: 065
  3. SIMBRINZA [Concomitant]
     Active Substance: BRIMONIDINE TARTRATE\BRINZOLAMIDE
     Indication: Glaucoma
     Dosage: 1 DOSAGE FORM, BID (1 DROP IN THE MORNING AND OTHER IN THE AFTERNOON, STARTED A LONG TIME AGO)
     Route: 065
  4. ALPRAZOLAM [Concomitant]
     Active Substance: ALPRAZOLAM
     Indication: Feeling of relaxation
     Dosage: 1 DOSAGE FORM, PRN (1 TABLET IN SOS)
     Route: 065

REACTIONS (2)
  - Device failure [Unknown]
  - Drug dose omission by device [Recovered/Resolved]

NARRATIVE: CASE EVENT DATE: 20240731
